FAERS Safety Report 25776371 (Version 1)
Quarter: 2025Q3

REPORT INFORMATION
  Report Type: Spontaneous
  Country: US (occurrence: US)
  Receive Date: 20250909
  Receipt Date: 20250909
  Transmission Date: 20251021
  Serious: No
  Sender: DOMPE FARMACEUTICI
  Company Number: US-FARMAPROD-202502-0544

PATIENT
  Age: 71 Year
  Sex: Female

DRUGS (25)
  1. OXERVATE [Suspect]
     Active Substance: CENEGERMIN-BKBJ
     Indication: Neurotrophic keratopathy
     Route: 047
     Dates: start: 20250206
  2. OXERVATE [Suspect]
     Active Substance: CENEGERMIN-BKBJ
  3. PEPPERMINT OIL [Concomitant]
     Active Substance: PEPPERMINT OIL
  4. ACETAMINOPHEN [Concomitant]
     Active Substance: ACETAMINOPHEN
  5. FLONASE ALLERGY RELIEF [Concomitant]
     Active Substance: FLUTICASONE PROPIONATE
  6. ZYRTEC [Concomitant]
     Active Substance: CETIRIZINE HYDROCHLORIDE
  7. MOMETASONE FUROATE [Concomitant]
     Active Substance: MOMETASONE FUROATE
  8. REFRESH OPTIVE ADVANCED [Concomitant]
     Active Substance: CARBOXYMETHYLCELLULOSE SODIUM\GLYCERIN\POLYSORBATE 80
  9. OFLOXACIN [Concomitant]
     Active Substance: OFLOXACIN
  10. DEXAMETHASONE SODIUM PHOSPHATE [Concomitant]
     Active Substance: DEXAMETHASONE SODIUM PHOSPHATE
  11. OZEMPIC [Concomitant]
     Active Substance: SEMAGLUTIDE
  12. CALCIUM 600 PLUS VITAMIN D3 [Concomitant]
  13. DOXYCYCLINE HYCLATE [Concomitant]
     Active Substance: DOXYCYCLINE HYCLATE
  14. ACYCLOVIR [Concomitant]
     Active Substance: ACYCLOVIR
  15. MELOXICAM [Concomitant]
     Active Substance: MELOXICAM
  16. GABAPENTIN [Concomitant]
     Active Substance: GABAPENTIN
  17. METOPROLOL TARTRATE [Concomitant]
     Active Substance: METOPROLOL TARTRATE
  18. ELIQUIS [Concomitant]
     Active Substance: APIXABAN
  19. ROSUVASTATIN CALCIUM [Concomitant]
     Active Substance: ROSUVASTATIN CALCIUM
  20. JARDIANCE [Concomitant]
     Active Substance: EMPAGLIFLOZIN
  21. ESOMEPRAZOLE MAGNESIUM [Concomitant]
     Active Substance: ESOMEPRAZOLE MAGNESIUM
  22. LEVOTHYROXINE SODIUM [Concomitant]
     Active Substance: LEVOTHYROXINE SODIUM
  23. POTASSIUM CHLORIDE [Concomitant]
     Active Substance: POTASSIUM CHLORIDE
  24. SPIRONOLACTONE [Concomitant]
     Active Substance: SPIRONOLACTONE
  25. FUROSEMIDE [Concomitant]
     Active Substance: FUROSEMIDE

REACTIONS (6)
  - Ocular discomfort [Unknown]
  - Eye pain [Unknown]
  - Lacrimation increased [Unknown]
  - Ocular hyperaemia [Unknown]
  - Eye irritation [Unknown]
  - Sinus pain [Unknown]

NARRATIVE: CASE EVENT DATE: 20250206
